FAERS Safety Report 8805052 (Version 1)
Quarter: 2012Q4

REPORT INFORMATION
  Report Type: 
  Country: US (occurrence: US)
  Receive Date: 20120924
  Receipt Date: 20120924
  Transmission Date: 20130627
  Serious: Yes (Other)
  Sender: FDA-Public Use
  Company Number: CHPA2012US019781

PATIENT
  Age: 75 Year
  Sex: Male

DRUGS (3)
  1. CONTROL PLP [Suspect]
     Indication: SMOKING CESSATION THERAPY
     Dosage: 21 mg, QD
     Route: 062
  2. CONTROL PLP [Suspect]
     Dosage: 21 mg, QD
     Route: 062
  3. CONTROL PLP [Suspect]
     Dosage: 21 mg, QD
     Route: 062
     Dates: start: 2009

REACTIONS (3)
  - Diabetes mellitus [Not Recovered/Not Resolved]
  - Rash [Recovered/Resolved]
  - Skin irritation [Recovered/Resolved]
